FAERS Safety Report 10173381 (Version 1)
Quarter: 2014Q2

REPORT INFORMATION
  Report Type: Spontaneous
  Country: US (occurrence: None)
  Receive Date: 20140514
  Receipt Date: 20140514
  Transmission Date: 20141212
  Serious: No
  Sender: FDA-Public Use
  Company Number: None

PATIENT
  Age: 32 Year
  Sex: Female
  Weight: 74.84 kg

DRUGS (1)
  1. CIPROFLAXACIN [Suspect]
     Indication: DIARRHOEA INFECTIOUS
     Dosage: 1 TABLET, TWICE DAILY, TAKEN BY MOUTH
     Route: 048
     Dates: start: 20140508, end: 20140508

REACTIONS (5)
  - Pain in extremity [None]
  - Dyspnoea [None]
  - Myalgia [None]
  - Arthropathy [None]
  - Asthenia [None]
